FAERS Safety Report 5142478-4 (Version None)
Quarter: 2006Q4

REPORT INFORMATION
  Report Type: 
  Country: None (occurrence: None)
  Receive Date: 20061102
  Receipt Date: 20061023
  Transmission Date: 20070319
  Serious: Yes (Other)
  Sender: FDA-Public Use
  Company Number: FR-ELI_LILLY_AND_COMPANY-FR200610004537

PATIENT
  Age: 60 Year
  Sex: Male

DRUGS (3)
  1. GEMZAR [Suspect]
     Indication: BLADDER CANCER
     Route: 042
  2. CISPLATIN [Concomitant]
     Indication: BLADDER CANCER
     Route: 042
  3. CARBOPLATIN [Concomitant]
     Indication: BLADDER CANCER
     Route: 042

REACTIONS (4)
  - HYPERTENSION [None]
  - MICROANGIOPATHY [None]
  - RENAL FAILURE [None]
  - RETINOPATHY [None]
